FAERS Safety Report 4268108-1 (Version None)
Quarter: 2004Q1

REPORT INFORMATION
  Report Type: 
  Country: None (occurrence: None)
  Receive Date: 20040109
  Receipt Date: 20040107
  Transmission Date: 20041129
  Serious: Yes (Hospitalization)
  Sender: FDA-Public Use
  Company Number: PHBS2004BR00581

PATIENT
  Age: 16 Year
  Sex: Female

DRUGS (4)
  1. TEGRETOL [Suspect]
     Indication: CONVULSION
     Route: 048
  2. TEGRETOL [Suspect]
     Dosage: 25 TABLETS, ONCE/SINGLE
     Route: 048
     Dates: start: 20040106, end: 20040106
  3. PHENOBARBITAL TAB [Suspect]
     Indication: CONVULSION
     Route: 048
  4. PHENOBARBITAL TAB [Suspect]
     Dosage: 25 TABLETS, ONCE/SINGLE
     Route: 048
     Dates: start: 20040106, end: 20040106

REACTIONS (3)
  - INTENTIONAL OVERDOSE [None]
  - SOMNOLENCE [None]
  - SUICIDE ATTEMPT [None]
